FAERS Safety Report 10362451 (Version 1)
Quarter: 2014Q3

REPORT INFORMATION
  Report Type: Spontaneous
  Country: IN (occurrence: IN)
  Receive Date: 20140805
  Receipt Date: 20140805
  Transmission Date: 20150326
  Serious: Yes (Other)
  Sender: FDA-Public Use
  Company Number: PHHY2014IN095026

PATIENT
  Age: 55 Year
  Sex: Female

DRUGS (5)
  1. FLUOXETINE [Suspect]
     Active Substance: FLUOXETINE\FLUOXETINE HYDROCHLORIDE
     Indication: MAJOR DEPRESSION
     Dosage: 100 MG PER DAY
  2. PARKIN [Concomitant]
     Active Substance: ETHOPROPAZINE
     Dosage: 2 MG
  3. FLUOXETINE [Suspect]
     Active Substance: FLUOXETINE\FLUOXETINE HYDROCHLORIDE
     Dosage: 200 MG PER DAY
  4. TRANCODOL [Concomitant]
     Dosage: 5 MG
  5. VALPROL [Concomitant]
     Dosage: 50 MG

REACTIONS (3)
  - Burning mouth syndrome [Recovered/Resolved]
  - Glossodynia [Recovered/Resolved]
  - Oral discomfort [Recovered/Resolved]
